FAERS Safety Report 14309290 (Version 2)
Quarter: 2018Q1

REPORT INFORMATION
  Report Type: Report from Study
  Country: CA (occurrence: CA)
  Receive Date: 20171220
  Receipt Date: 20180117
  Transmission Date: 20180509
  Serious: Yes (Hospitalization, Other)
  Sender: FDA-Public Use
  Company Number: CA-JNJFOC-20171011986

PATIENT
  Sex: Male

DRUGS (1)
  1. IMBRUVICA [Suspect]
     Active Substance: IBRUTINIB
     Indication: WALDENSTROM^S MACROGLOBULINAEMIA
     Dosage: STRENGTH = 140 MG
     Route: 048
     Dates: end: 201712

REACTIONS (4)
  - Pleural effusion [Unknown]
  - Pneumonia [Recovered/Resolved]
  - Cardiac failure congestive [Recovering/Resolving]
  - Atrial fibrillation [Unknown]
